FAERS Safety Report 8909109 (Version 1)
Quarter: 2012Q4

REPORT INFORMATION
  Report Type: 
  Country: US (occurrence: US)
  Receive Date: 20121113
  Receipt Date: 20121113
  Transmission Date: 20130627
  Serious: No
  Sender: FDA-Public Use
  Company Number: US-AMGEN-USASP2012011226

PATIENT
  Age: 53 Year
  Sex: Female
  Weight: 54.42 kg

DRUGS (10)
  1. ENBREL [Suspect]
     Indication: PRODUCT USED FOR UNKNOWN INDICATION
     Dosage: 50 mg, qwk
     Route: 058
  2. METHOTREXATE [Concomitant]
     Dosage: 2.5 mg, UNK
     Route: 048
  3. ALENDRONATE [Concomitant]
     Dosage: 70 mg, UNK
     Route: 048
  4. MOBIC [Concomitant]
     Dosage: 7.5 mg, UNK
     Route: 048
  5. IRON [Concomitant]
     Dosage: 18 mg, UNK
     Route: 048
  6. FLEXERIL                           /00428402/ [Concomitant]
     Dosage: 5 mg, UNK
     Route: 048
  7. CALCIUM [Concomitant]
     Dosage: UNK
  8. TRIPLE FLEX [Concomitant]
     Dosage: UNK
     Route: 048
  9. VITAMIN A /00056001/ [Concomitant]
     Dosage: UNK
     Route: 048
  10. VITAMIN C                          /00008001/ [Concomitant]
     Dosage: UNK

REACTIONS (1)
  - Oral herpes [Unknown]
